FAERS Safety Report 7456781-6 (Version None)
Quarter: 2011Q2

REPORT INFORMATION
  Report Type: 
  Country: None (occurrence: None)
  Receive Date: 20110504
  Receipt Date: 20110421
  Transmission Date: 20111010
  Serious: Yes (Hospitalization)
  Sender: FDA-Public Use
  Company Number: US-BIOGENIDEC-2011BI007945

PATIENT
  Age: 23 Year
  Sex: Male

DRUGS (2)
  1. TYSABRI [Suspect]
     Indication: MULTIPLE SCLEROSIS
     Route: 042
     Dates: start: 20100420, end: 20110127
  2. TYSABRI [Suspect]
     Route: 042
     Dates: start: 20110322

REACTIONS (4)
  - ABASIA [None]
  - MULTIPLE SCLEROSIS RELAPSE [None]
  - HERPES ZOSTER [None]
  - OROPHARYNGEAL PAIN [None]
